FAERS Safety Report 8603295-3 (Version None)
Quarter: 2012Q3

REPORT INFORMATION
  Report Type: 
  Country: None (occurrence: None)
  Receive Date: 20120817
  Receipt Date: 20120730
  Transmission Date: 20120928
  Serious: Yes (Other)
  Sender: FDA-Public Use
  Company Number: GB-EISAI INC-E7389-02863-SOL-GB

PATIENT
  Sex: Female
  Weight: 74 kg

DRUGS (4)
  1. TRASTUZUMAB [Suspect]
     Route: 041
     Dates: start: 20120525
  2. ACETAMINOPHEN AND CODEINE PHOSPHATE [Concomitant]
     Dates: start: 20120419
  3. HALAVEN [Suspect]
     Route: 041
     Dates: start: 20120525
  4. IBUPROFEN [Concomitant]
     Indication: HEADACHE
     Dates: start: 20120419

REACTIONS (1)
  - MIGRAINE [None]
